FAERS Safety Report 13335241 (Version 1)
Quarter: 2017Q1

REPORT INFORMATION
  Report Type: Spontaneous
  Country: US (occurrence: US)
  Receive Date: 20170314
  Receipt Date: 20170314
  Transmission Date: 20170428
  Serious: No
  Sender: FDA-Public Use
  Company Number: US-GALDERMA-US16002356

PATIENT
  Age: 36 Year
  Sex: Female

DRUGS (2)
  1. UNKNOWN SOAP [Concomitant]
     Indication: THERAPEUTIC SKIN CARE TOPICAL
  2. TRI-LUMA [Suspect]
     Active Substance: FLUOCINOLONE ACETONIDE\HYDROQUINONE\TRETINOIN
     Indication: PIGMENTATION DISORDER
     Route: 061
     Dates: start: 2016

REACTIONS (6)
  - Skin burning sensation [Recovered/Resolved]
  - Drug ineffective [Not Recovered/Not Resolved]
  - Erythema [Recovered/Resolved]
  - Skin exfoliation [Recovered/Resolved]
  - Pruritus [Recovered/Resolved]
  - Intentional product misuse [Not Recovered/Not Resolved]

NARRATIVE: CASE EVENT DATE: 2016
